FAERS Safety Report 20746294 (Version 1)
Quarter: 2022Q2

REPORT INFORMATION
  Report Type: Spontaneous
  Country: US (occurrence: None)
  Receive Date: 20220425
  Receipt Date: 20220425
  Transmission Date: 20220721
  Serious: Yes (Other)
  Sender: FDA-Public Use
  Company Number: None

PATIENT
  Age: 63 Year
  Sex: Female
  Weight: 65.25 kg

DRUGS (1)
  1. BEBTELOVIMAB [Suspect]
     Active Substance: BEBTELOVIMAB
     Route: 040
     Dates: start: 20220425, end: 20220425

REACTIONS (5)
  - Erythema [None]
  - Erythema [None]
  - Dizziness [None]
  - Blood pressure increased [None]
  - Injection site reaction [None]

NARRATIVE: CASE EVENT DATE: 20220425
